FAERS Safety Report 9736242 (Version 2)
Quarter: 2013Q4

REPORT INFORMATION
  Report Type: Spontaneous
  Country: AU (occurrence: AU)
  Receive Date: 20131206
  Receipt Date: 20131206
  Transmission Date: 20140711
  Serious: Yes (Other)
  Sender: FDA-Public Use
  Company Number: PHHY2013AU135207

PATIENT
  Age: 26 Year
  Sex: Female

DRUGS (4)
  1. METOCLOPRAMIDE [Suspect]
     Indication: NAUSEA
  2. RANITIDINE [Interacting]
     Indication: GASTROOESOPHAGEAL REFLUX DISEASE
  3. SERTRALINE [Interacting]
     Indication: DEPRESSION
     Dosage: 50 MG, DAILY
  4. SERTRALINE [Interacting]
     Dosage: 100 MG, DAILY

REACTIONS (15)
  - Drug-induced liver injury [Recovered/Resolved]
  - Alanine aminotransferase increased [Recovered/Resolved]
  - Aspartate aminotransferase increased [Recovered/Resolved]
  - Blood bilirubin increased [Recovered/Resolved]
  - Transaminases increased [Recovered/Resolved]
  - Hepatitis [Recovered/Resolved]
  - Nausea [Recovered/Resolved]
  - Vomiting [Recovered/Resolved]
  - Malaise [Recovered/Resolved]
  - Urobilinogen urine [Recovered/Resolved]
  - Chromaturia [Recovered/Resolved]
  - Pruritus [Recovered/Resolved]
  - Eosinophilia [Recovered/Resolved]
  - Drug interaction [Unknown]
  - Exposure during pregnancy [Unknown]
